FAERS Safety Report 14679778 (Version 1)
Quarter: 2018Q1

REPORT INFORMATION
  Report Type: Spontaneous
  Country: ZA (occurrence: ZA)
  Receive Date: 20180326
  Receipt Date: 20180326
  Transmission Date: 20180509
  Serious: Yes (Other)
  Sender: FDA-Public Use
  Company Number: ZA-BAYER-2018-053608

PATIENT
  Age: 33 Year
  Sex: Female

DRUGS (1)
  1. MIRENA [Suspect]
     Active Substance: LEVONORGESTREL
     Dosage: 20 MCG/24HR, CONT
     Route: 015
     Dates: start: 2015

REACTIONS (10)
  - Seizure [None]
  - Insomnia [None]
  - Blood prolactin increased [None]
  - Depression suicidal [None]
  - Pituitary tumour benign [None]
  - Benign breast neoplasm [None]
  - Brain neoplasm [None]
  - Adrenal insufficiency [None]
  - Ovarian cyst [None]
  - Intentional medical device removal by patient [None]

NARRATIVE: CASE EVENT DATE: 2016
